FAERS Safety Report 8851171 (Version 1)
Quarter: 2012Q4

REPORT INFORMATION
  Report Type: 
  Country: US (occurrence: US)
  Receive Date: 20121019
  Receipt Date: 20121019
  Transmission Date: 20130627
  Serious: Yes (Other)
  Sender: FDA-Public Use
  Company Number: US-BRISTOL-MYERS SQUIBB COMPANY-16775488

PATIENT
  Age: 77 Year
  Sex: Male

DRUGS (3)
  1. YERVOY [Suspect]
     Dosage: 4th dose on 2Jul12
  2. ASPIRIN [Concomitant]
  3. SIMVASTATIN [Concomitant]

REACTIONS (1)
  - Diarrhoea [Not Recovered/Not Resolved]
